FAERS Safety Report 26205048 (Version 1)
Quarter: 2025Q4

REPORT INFORMATION
  Report Type: Spontaneous
  Country: US (occurrence: US)
  Receive Date: 20251227
  Receipt Date: 20251227
  Transmission Date: 20260119
  Serious: Yes (Death, Other)
  Sender: AMGEN
  Company Number: US-AMGEN-USASP2025254986

PATIENT

DRUGS (2)
  1. DARBEPOETIN ALFA [Suspect]
     Active Substance: DARBEPOETIN ALFA
     Indication: Chronic kidney disease
     Dosage: UNK
     Route: 040
  2. DARBEPOETIN ALFA [Suspect]
     Active Substance: DARBEPOETIN ALFA
     Indication: Anaemia

REACTIONS (14)
  - Death [Fatal]
  - Cardiovascular disorder [Fatal]
  - Cardiac failure congestive [Unknown]
  - Hyperkalaemia [Unknown]
  - Adverse event [Unknown]
  - Retinal disorder [Unknown]
  - Hypersensitivity [Unknown]
  - Hypertension [Unknown]
  - Cardiac disorder [Unknown]
  - Adrenal disorder [Unknown]
  - Hepatotoxicity [Unknown]
  - Neoplasm malignant [Unknown]
  - Pulmonary hypertension [Unknown]
  - Cardiac valve disease [Unknown]
